FAERS Safety Report 5090862-X (Version None)
Quarter: 2006Q3

REPORT INFORMATION
  Report Type: 
  Country: None (occurrence: None)
  Receive Date: 20060823
  Receipt Date: 20060809
  Transmission Date: 20061208
  Serious: Yes (Hospitalization, Other)
  Sender: FDA-Public Use
  Company Number: 8017463

PATIENT
  Age: 3 Year
  Sex: Male

DRUGS (1)
  1. THEOPHYLLINE [Suspect]
     Indication: ASTHMA
     Dosage: 8.6 MG/KG /D PO
     Route: 048

REACTIONS (11)
  - ASTHENIA [None]
  - BLOOD GLUCOSE DECREASED [None]
  - BRAIN OEDEMA [None]
  - CEREBRAL ATROPHY [None]
  - FEBRILE CONVULSION [None]
  - ISCHAEMIA [None]
  - MENTAL RETARDATION SEVERITY UNSPECIFIED [None]
  - MONOPLEGIA [None]
  - NERVE INJURY [None]
  - RESPIRATORY FAILURE [None]
  - VIRAL INFECTION [None]
